FAERS Safety Report 16217484 (Version 3)
Quarter: 2019Q3

REPORT INFORMATION
  Report Type: Spontaneous
  Country: GB (occurrence: GB)
  Receive Date: 20190419
  Receipt Date: 20190725
  Transmission Date: 20191004
  Serious: Yes (Other)
  Sender: FDA-Public Use
  Company Number: GB-JNJFOC-20190429559

PATIENT
  Age: 65 Year
  Sex: Male

DRUGS (2)
  1. SIMPONI [Suspect]
     Active Substance: GOLIMUMAB
     Route: 058
     Dates: start: 20190701
  2. SIMPONI [Suspect]
     Active Substance: GOLIMUMAB
     Indication: ANKYLOSING SPONDYLITIS
     Route: 058
     Dates: start: 2015

REACTIONS (6)
  - Lower respiratory tract infection [Not Recovered/Not Resolved]
  - Bronchitis viral [Unknown]
  - Product use issue [Unknown]
  - Off label use [Unknown]
  - Upper respiratory tract infection [Unknown]
  - Rash [Unknown]

NARRATIVE: CASE EVENT DATE: 2018
